FAERS Safety Report 15985263 (Version 1)
Quarter: 2019Q1

REPORT INFORMATION
  Report Type: Report from Study
  Country: US (occurrence: US)
  Receive Date: 20190220
  Receipt Date: 20190220
  Transmission Date: 20190418
  Serious: Yes (Hospitalization, Other)
  Sender: FDA-Public Use
  Company Number: US-GILEAD-2019-0391662

PATIENT
  Age: 50 Year
  Sex: Female

DRUGS (1)
  1. AMBRISENTAN [Suspect]
     Active Substance: AMBRISENTAN
     Indication: PULMONARY HYPERTENSION
     Dosage: 5 MG
     Route: 065

REACTIONS (7)
  - Pain of skin [Unknown]
  - Insomnia [Unknown]
  - Unevaluable event [Unknown]
  - Rash maculo-papular [Unknown]
  - Decreased appetite [Not Recovered/Not Resolved]
  - Fistula [Unknown]
  - Haemodialysis [Not Recovered/Not Resolved]
